FAERS Safety Report 7257352-7 (Version None)
Quarter: 2011Q1

REPORT INFORMATION
  Report Type: 
  Country: None (occurrence: None)
  Receive Date: 20110129
  Receipt Date: 20100720
  Transmission Date: 20110831
  Serious: No
  Sender: FDA-Public Use
  Company Number: US-ABBOTT-10P-163-0658954-00

PATIENT
  Sex: Female
  Weight: 150.27 kg

DRUGS (1)
  1. HUMIRA [Suspect]
     Indication: PSORIASIS
     Route: 058
     Dates: start: 20100601, end: 20100721

REACTIONS (9)
  - TREMOR [None]
  - CHILLS [None]
  - DIARRHOEA [None]
  - ERYTHEMA [None]
  - OEDEMA PERIPHERAL [None]
  - PAIN IN EXTREMITY [None]
  - PAIN [None]
  - CELLULITIS [None]
  - VOMITING [None]
